FAERS Safety Report 23411390 (Version 1)
Quarter: 2024Q1

REPORT INFORMATION
  Report Type: Spontaneous
  Country: CN (occurrence: CN)
  Receive Date: 20240117
  Receipt Date: 20240117
  Transmission Date: 20240410
  Serious: Yes (Other)
  Sender: FDA-Public Use
  Company Number: CN-PFIZER INC-PV202400006042

PATIENT
  Age: 20 Year
  Sex: Male

DRUGS (2)
  1. CYTARABINE [Suspect]
     Active Substance: CYTARABINE
     Indication: Neoplasm
     Dosage: 35 MG, 1X/DAY
     Route: 037
     Dates: start: 20231206
  2. METHOTREXATE SODIUM [Suspect]
     Active Substance: METHOTREXATE SODIUM
     Indication: Neoplasm
     Dosage: 15 MG, 1X/DAY
     Route: 037
     Dates: start: 20231206

REACTIONS (4)
  - Gastrointestinal disorder [Recovering/Resolving]
  - Gastrooesophageal reflux disease [Recovering/Resolving]
  - Dysphagia [Recovering/Resolving]
  - Nausea [Recovering/Resolving]

NARRATIVE: CASE EVENT DATE: 20231224
